FAERS Safety Report 5093075-0 (Version None)
Quarter: 2006Q3

REPORT INFORMATION
  Report Type: 
  Country: None (occurrence: None)
  Receive Date: 20060828
  Receipt Date: 20060811
  Transmission Date: 20061208
  Serious: Yes (Disabling)
  Sender: FDA-Public Use
  Company Number: 2006099940

PATIENT
  Age: 55 Year
  Sex: Male

DRUGS (6)
  1. LIPITOR [Suspect]
     Indication: HYPERLIPIDAEMIA
     Dosage: 5 MG (5 MG, 1 IN 1 D), ORAL
     Route: 048
     Dates: start: 20060712, end: 20060727
  2. OMEPRAZOLE [Suspect]
     Indication: GASTRITIS
     Dosage: 10 MG (10 MG, 1 IN 1 D), ORAL
     Route: 048
     Dates: start: 20060710, end: 20060727
  3. CARVEDILOL [Suspect]
     Indication: ACUTE MYOCARDIAL INFARCTION
     Dosage: 2.5 MG (2.5 MG, 1 IN 1 D), ORAL
     Route: 048
     Dates: start: 20060712, end: 20060727
  4. LOSARTAN POTASSIUM [Suspect]
     Indication: ACUTE MYOCARDIAL INFARCTION
     Dosage: 12.5 MG (12.5 MG, 1 IN 1 D), ORAL
     Route: 048
     Dates: start: 20060712, end: 20060727
  5. ASPIRIN [Concomitant]
  6. TICLOPIDINE HCL [Concomitant]

REACTIONS (3)
  - CORONARY ARTERY OCCLUSION [None]
  - CORONARY ARTERY THROMBOSIS [None]
  - PLATELET COUNT DECREASED [None]
